FAERS Safety Report 25531085 (Version 1)
Quarter: 2025Q3

REPORT INFORMATION
  Report Type: Report from Study
  Country: US (occurrence: US)
  Receive Date: 20250708
  Receipt Date: 20250708
  Transmission Date: 20251020
  Serious: No
  Sender: SANDOZ
  Company Number: US-SANDOZ-SDZ2024US099850

PATIENT
  Age: 14 Year
  Sex: Male

DRUGS (4)
  1. OMNITROPE [Suspect]
     Active Substance: SOMATROPIN
     Indication: Hypopituitarism
     Dosage: 1.9 MG, QD
     Route: 058
     Dates: start: 2024
  2. OMNITROPE [Suspect]
     Active Substance: SOMATROPIN
     Indication: Hypopituitarism
     Dosage: 1.9 MG, QD
     Route: 058
     Dates: start: 2024
  3. OMNITROPE [Suspect]
     Active Substance: SOMATROPIN
     Dosage: UNK, QD
     Route: 065
     Dates: start: 20241202
  4. OMNITROPE [Suspect]
     Active Substance: SOMATROPIN
     Dosage: UNK, QD
     Route: 065
     Dates: start: 20241202

REACTIONS (3)
  - Device difficult to use [Unknown]
  - Device mechanical issue [Unknown]
  - Device breakage [Unknown]

NARRATIVE: CASE EVENT DATE: 20241001
